FAERS Safety Report 8900683 (Version 1)
Quarter: 2012Q4

REPORT INFORMATION
  Report Type: 
  Country: CA (occurrence: CA)
  Receive Date: 20121109
  Receipt Date: 20121109
  Transmission Date: 20130627
  Serious: Yes (Hospitalization, Other)
  Sender: FDA-Public Use
  Company Number: PHMT2006CA01153

PATIENT
  Sex: Female

DRUGS (4)
  1. SANDOSTATIN LAR [Suspect]
     Indication: NEUROENDOCRINE TUMOUR
     Dosage: 20 mg every 4 weeks
     Dates: start: 20050326
  2. ESTRACE [Concomitant]
  3. PROVERA [Concomitant]
  4. SYNTHROID [Concomitant]

REACTIONS (8)
  - Colon cancer [Unknown]
  - Diarrhoea [Unknown]
  - Dehydration [Unknown]
  - Blood pressure decreased [Unknown]
  - Muscle spasms [Unknown]
  - Contusion [Unknown]
  - Hyperglycaemia [Unknown]
  - Nausea [Unknown]
